FAERS Safety Report 17014785 (Version 1)
Quarter: 2019Q4

REPORT INFORMATION
  Report Type: Report from Study
  Country: SG (occurrence: SG)
  Receive Date: 20191111
  Receipt Date: 20191111
  Transmission Date: 20200122
  Serious: Yes (Death)
  Sender: FDA-Public Use
  Company Number: SG-ROCHE-2460396

PATIENT
  Sex: Female

DRUGS (2)
  1. TECENTRIQ [Suspect]
     Active Substance: ATEZOLIZUMAB
     Indication: GLOMERULAR FILTRATION RATE
     Route: 041
     Dates: start: 20190806, end: 20190917
  2. AVASTIN [Suspect]
     Active Substance: BEVACIZUMAB
     Indication: GLOMERULAR FILTRATION RATE
     Route: 042
     Dates: start: 20190806, end: 20190917

REACTIONS (1)
  - Death [Fatal]

NARRATIVE: CASE EVENT DATE: 20191024
